FAERS Safety Report 18332002 (Version 1)
Quarter: 2020Q4

REPORT INFORMATION
  Report Type: Spontaneous
  Country: CN (occurrence: CN)
  Receive Date: 20201001
  Receipt Date: 20201001
  Transmission Date: 20210113
  Serious: Yes (Other)
  Sender: FDA-Public Use
  Company Number: CN-IPCA LABORATORIES LIMITED-IPC-2020-CN-003168

PATIENT

DRUGS (1)
  1. ALLOPURINOL TABLET [Suspect]
     Active Substance: ALLOPURINOL
     Indication: GOUT
     Dosage: 100 MILLIGRAM, BID
     Route: 048

REACTIONS (4)
  - Blepharospasm [Recovered/Resolved]
  - Refraction disorder [Recovered/Resolved]
  - Conjunctivitis [Recovered/Resolved]
  - Meige^s syndrome [Recovered/Resolved]
